FAERS Safety Report 23581833 (Version 3)
Quarter: 2024Q3

REPORT INFORMATION
  Report Type: Report from Study
  Country: US (occurrence: US)
  Receive Date: 20240229
  Receipt Date: 20240814
  Transmission Date: 20241016
  Serious: Yes (Life-Threatening)
  Sender: ALKERMES
  Company Number: US-ALKERMES INC.-ALK-2024-000453

PATIENT
  Age: 54 Year
  Sex: Male

DRUGS (8)
  1. BUPRENORPHINE [Suspect]
     Active Substance: BUPRENORPHINE
     Indication: Drug use disorder
     Dosage: 380 MILLIGRAM, Q3WK,WEEK 0,3,6
     Route: 030
     Dates: start: 20240209
  2. INVESTIGATIONAL PRODUCT [Suspect]
     Active Substance: INVESTIGATIONAL PRODUCT
     Indication: Drug use disorder
     Dosage: 380 MILLIGRAM, Q3WK,WEEK 0,3,6
     Route: 030
     Dates: start: 20240209
  3. VIVITROL [Suspect]
     Active Substance: NALTREXONE
     Indication: Drug use disorder
     Dosage: 380 MILLIGRAM, Q3WK,WEEK 0,3,6
     Route: 030
     Dates: start: 20240209
  4. VIVITROL [Suspect]
     Active Substance: NALTREXONE
     Indication: Drug use disorder
     Dosage: 380 MILLIGRAM, Q3WK,WEEK 0,3,6
     Route: 030
     Dates: start: 20240209
  5. BUPRENORPHINE [Suspect]
     Active Substance: BUPRENORPHINE
     Dosage: 300 MILLIGRAM,Q4WK, WEEKS 0,4
     Route: 058
     Dates: start: 20240215
  6. INVESTIGATIONAL PRODUCT [Suspect]
     Active Substance: INVESTIGATIONAL PRODUCT
     Dosage: 300 MILLIGRAM,Q4WK, WEEKS 0,4
     Route: 058
     Dates: start: 20240215
  7. VIVITROL [Suspect]
     Active Substance: NALTREXONE
     Dosage: 300 MILLIGRAM,Q4WK, WEEKS 0,4
     Route: 058
     Dates: start: 20240215
  8. VIVITROL [Suspect]
     Active Substance: NALTREXONE
     Dosage: 300 MILLIGRAM,Q4WK, WEEKS 0,4
     Route: 058
     Dates: start: 20240215

REACTIONS (1)
  - Incarcerated inguinal hernia [Recovered/Resolved]

NARRATIVE: CASE EVENT DATE: 20240216
